FAERS Safety Report 5792553-6 (Version None)
Quarter: 2008Q2

REPORT INFORMATION
  Report Type: 
  Country: None (occurrence: None)
  Receive Date: 20080626
  Receipt Date: 20080618
  Transmission Date: 20081010
  Serious: Yes (Hospitalization)
  Sender: FDA-Public Use
  Company Number: US-AMGEN-QUU288474

PATIENT
  Sex: Female

DRUGS (4)
  1. ENBREL [Suspect]
     Indication: RHEUMATOID ARTHRITIS
     Route: 058
  2. PLAQUENIL [Concomitant]
  3. PREDNISONE [Concomitant]
  4. ARAVA [Concomitant]

REACTIONS (2)
  - CEREBELLAR ATAXIA [None]
  - ENCEPHALITIS [None]
